FAERS Safety Report 16444660 (Version 2)
Quarter: 2020Q2

REPORT INFORMATION
  Report Type: Spontaneous
  Country: CA (occurrence: CA)
  Receive Date: 20190618
  Receipt Date: 20200401
  Transmission Date: 20200713
  Serious: Yes (Other)
  Sender: FDA-Public Use
  Company Number: CA-FERRINGPH-2019FE03421

PATIENT
  Age: 36 Year
  Sex: Female

DRUGS (11)
  1. PROGESTERONE. [Suspect]
     Active Substance: PROGESTERONE
     Indication: PRODUCT USED FOR UNKNOWN INDICATION
     Dosage: UNK
     Route: 065
     Dates: start: 20190129
  2. ALEMTUZUMAB [Suspect]
     Active Substance: ALEMTUZUMAB
     Indication: MULTIPLE SCLEROSIS
     Dosage: 12 MG, 1 TIME DAILY
     Route: 042
     Dates: start: 20171106, end: 20171108
  3. CIMETIDINE [Concomitant]
     Active Substance: CIMETIDINE
     Indication: PREMEDICATION
     Dosage: 200 MG, FOR 3 DAYS
     Route: 048
     Dates: start: 20171106, end: 20171108
  4. METHYLPREDNISOLONE. [Concomitant]
     Active Substance: METHYLPREDNISOLONE
     Indication: PREMEDICATION
     Dosage: 1 G, FOR 3 DAYS
     Route: 042
     Dates: start: 20171106, end: 20171108
  5. PROGESTERONE. [Suspect]
     Active Substance: PROGESTERONE
     Indication: PRODUCT USED FOR UNKNOWN INDICATION
     Dosage: UNK
     Route: 065
     Dates: start: 201711
  6. VITAMIN D                          /00107901/ [Concomitant]
     Active Substance: ERGOCALCIFEROL
     Indication: SUPPLEMENTATION THERAPY
     Route: 065
  7. ALESSE 28 [Concomitant]
     Active Substance: ETHINYL ESTRADIOL\LEVONORGESTREL
     Indication: ORAL CONTRACEPTION
     Dosage: UNK, 1 TIME DAILY
     Route: 048
  8. GRAVOL [Concomitant]
     Active Substance: DIMENHYDRINATE
     Indication: PREMEDICATION
     Dosage: 50 MG, FOR 3 DAYS
     Route: 048
     Dates: start: 20171106, end: 20171108
  9. TYLENOL [Concomitant]
     Active Substance: ACETAMINOPHEN
     Indication: PREMEDICATION
     Dosage: UNK, FOR 3 DAYS
     Route: 048
     Dates: start: 20171106, end: 20171108
  10. ACICLOVIR [Concomitant]
     Active Substance: ACYCLOVIR
     Indication: PREMEDICATION
     Dosage: 200 MG, 1 EVERY 12 HRS FOR 2 MONTHS
     Route: 048
     Dates: start: 20171106, end: 201712
  11. BENADRYL [Concomitant]
     Active Substance: DIPHENHYDRAMINE HYDROCHLORIDE
     Indication: PREMEDICATION
     Dosage: 50 MG, FOR 3 DAYS
     Route: 048
     Dates: start: 20171106, end: 20171108

REACTIONS (32)
  - Headache [Recovered/Resolved]
  - Feeling abnormal [Recovered/Resolved]
  - Axillary pain [Not Recovered/Not Resolved]
  - Fall [Recovered/Resolved]
  - Luteal phase deficiency [Not Recovered/Not Resolved]
  - Syncope [Recovered/Resolved]
  - Osteoarthritis [Not Recovered/Not Resolved]
  - Rhinorrhoea [Recovered/Resolved]
  - Head injury [Recovered/Resolved]
  - Blood urine present [Recovered/Resolved]
  - Pyrexia [Not Recovered/Not Resolved]
  - Skin discolouration [Not Recovered/Not Resolved]
  - Haemoglobin decreased [Recovered/Resolved]
  - Head discomfort [Not Recovered/Not Resolved]
  - Urticaria [Recovered/Resolved]
  - Fatigue [Not Recovered/Not Resolved]
  - Neuralgia [Not Recovered/Not Resolved]
  - Wheezing [Not Recovered/Not Resolved]
  - Vomiting [Recovered/Resolved]
  - Progesterone decreased [Recovered/Resolved]
  - Red blood cell count decreased [Recovered/Resolved]
  - Urinary tract infection [Recovered/Resolved]
  - Feeling hot [Not Recovered/Not Resolved]
  - Intervertebral disc degeneration [Not Recovered/Not Resolved]
  - Lower respiratory tract infection [Not Recovered/Not Resolved]
  - Lymphocyte count decreased [Recovered/Resolved]
  - Platelet count decreased [Recovered/Resolved]
  - Urine leukocyte esterase positive [Recovered/Resolved]
  - White blood cell count decreased [Recovered/Resolved]
  - Productive cough [Not Recovered/Not Resolved]
  - Rash [Recovered/Resolved]
  - Urine abnormality [Not Recovered/Not Resolved]

NARRATIVE: CASE EVENT DATE: 201901
